FAERS Safety Report 16014028 (Version 4)
Quarter: 2019Q2

REPORT INFORMATION
  Report Type: Spontaneous
  Country: JP (occurrence: JP)
  Receive Date: 20190227
  Receipt Date: 20190614
  Transmission Date: 20190711
  Serious: Yes (Hospitalization, Other)
  Sender: FDA-Public Use
  Company Number: JP-SA-2019SA050620

PATIENT
  Age: 67 Year
  Sex: Male
  Weight: 60 kg

DRUGS (17)
  1. ELPLAT [Suspect]
     Active Substance: OXALIPLATIN
     Dosage: 336 MG, QD
     Route: 041
     Dates: start: 20130218, end: 20130218
  2. DEXART [Concomitant]
     Active Substance: DEXAMETHASONE SODIUM PHOSPHATE
     Dosage: UNK
     Dates: start: 20130402, end: 20130402
  3. GRANISETRON HYDROCHLORIDE. [Concomitant]
     Active Substance: GRANISETRON HYDROCHLORIDE
     Dosage: UNK
     Dates: start: 20130402, end: 20130402
  4. ELPLAT [Suspect]
     Active Substance: OXALIPLATIN
     Indication: COLON CANCER
     Dosage: 312 MG, QD
     Route: 041
     Dates: start: 20120703, end: 20120703
  5. ELPLAT [Suspect]
     Active Substance: OXALIPLATIN
     Dosage: 342 MG, QD
     Route: 041
     Dates: start: 20121217, end: 20121217
  6. ELPLAT [Suspect]
     Active Substance: OXALIPLATIN
     Dosage: 342 MG, QD
     Route: 041
     Dates: start: 20130107, end: 20130107
  7. ELPLAT [Suspect]
     Active Substance: OXALIPLATIN
     Dosage: 340 MG, QD
     Route: 041
     Dates: start: 20130128, end: 20130128
  8. AVASTIN [Concomitant]
     Active Substance: BEVACIZUMAB
     Dosage: UNK
     Dates: start: 20120703, end: 20120906
  9. ELPLAT [Suspect]
     Active Substance: OXALIPLATIN
     Dosage: 312 MG, QD
     Route: 041
     Dates: start: 20120726, end: 20120726
  10. ELPLAT [Suspect]
     Active Substance: OXALIPLATIN
     Dosage: 336 MG, QD
     Route: 041
     Dates: start: 20130402, end: 20130402
  11. CAPECITABINE. [Concomitant]
     Active Substance: CAPECITABINE
     Dosage: UNK UNK, UNK
     Route: 065
     Dates: start: 20120904
  12. DECADRON [DEXAMETHASONE SODIUM PHOSPHATE] [Concomitant]
     Dosage: UNK
     Dates: start: 20120703, end: 20130311
  13. ELPLAT [Suspect]
     Active Substance: OXALIPLATIN
     Dosage: 324 MG, QD
     Route: 041
     Dates: start: 20120906, end: 20120906
  14. CAPECITABINE. [Concomitant]
     Active Substance: CAPECITABINE
     Dosage: UNK
     Dates: start: 20120703
  15. KYTRIL [Concomitant]
     Active Substance: GRANISETRON HYDROCHLORIDE
     Dosage: UNK
     Dates: start: 20120703, end: 20130311
  16. ELPLAT [Suspect]
     Active Substance: OXALIPLATIN
     Dosage: 312 MG, QD
     Route: 041
     Dates: start: 20120816, end: 20120816
  17. ELPLAT [Suspect]
     Active Substance: OXALIPLATIN
     Dosage: 336 MG, QD
     Route: 041
     Dates: start: 20130311, end: 20130311

REACTIONS (6)
  - Varices oesophageal [Recovering/Resolving]
  - Platelet count decreased [Unknown]
  - Splenomegaly [Not Recovered/Not Resolved]
  - Portal hypertension [Not Recovered/Not Resolved]
  - Alanine aminotransferase increased [Unknown]
  - Focal nodular hyperplasia [Not Recovered/Not Resolved]

NARRATIVE: CASE EVENT DATE: 20121112
